FAERS Safety Report 8539474-3 (Version None)
Quarter: 2012Q3

REPORT INFORMATION
  Report Type: 
  Country: None (occurrence: None)
  Receive Date: 20120726
  Receipt Date: 20120723
  Transmission Date: 20120928
  Serious: Yes (Hospitalization)
  Sender: FDA-Public Use
  Company Number: PHEH2012US013268

PATIENT
  Sex: Male

DRUGS (4)
  1. TEGRETOL [Suspect]
     Indication: CONVULSION
     Dosage: 200 MG, UNK
  2. TEGRETOL-XR [Suspect]
     Indication: CONVULSION
     Dosage: 200 MG 5 TIMES DAILY
     Route: 048
  3. TEGRETOL [Suspect]
  4. TRAMADOL HYDROCHLORIDE [Concomitant]
     Dosage: UNK UKN, UNK
     Dates: start: 20111001

REACTIONS (5)
  - PAIN IN EXTREMITY [None]
  - FALL [None]
  - LACERATION [None]
  - LIMB CRUSHING INJURY [None]
  - TREMOR [None]
